FAERS Safety Report 5233455-3 (Version None)
Quarter: 2007Q1

REPORT INFORMATION
  Report Type: 
  Country: None (occurrence: None)
  Receive Date: 20070208
  Receipt Date: 20070202
  Transmission Date: 20070707
  Serious: Yes (Hospitalization)
  Sender: FDA-Public Use
  Company Number: NL-SANOFI-SYNTHELABO-F01200602109

PATIENT
  Sex: Female

DRUGS (3)
  1. BEVACIZUMAB [Suspect]
     Route: 041
     Dates: start: 20060913, end: 20060913
  2. CAPECITABINE [Suspect]
     Dosage: 1000MG/M2 ORALLY B.I.D. ON DAY 1-14 (1250MG/M2 AFTER 6 CYCLES)
     Route: 048
     Dates: start: 20060913, end: 20060913
  3. OXALIPLATIN [Suspect]
     Indication: COLORECTAL CANCER
     Dosage: UNK
     Route: 041
     Dates: start: 20060913, end: 20060913

REACTIONS (2)
  - EPILEPSY [None]
  - HEMIPARESIS [None]
